FAERS Safety Report 6464522-4 (Version None)
Quarter: 2009Q4

REPORT INFORMATION
  Report Type: 
  Country: None (occurrence: None)
  Receive Date: 20091201
  Receipt Date: 20091122
  Transmission Date: 20100525
  Serious: Yes (Other)
  Sender: FDA-Public Use
  Company Number: US-PFIZER INC-2009237983

PATIENT
  Sex: Female

DRUGS (26)
  1. PROVERA [Suspect]
     Indication: MENOPAUSE
     Dosage: 2.5 MG, UNK
     Dates: start: 19850101, end: 20070801
  2. DEPO-ESTRADIOL [Suspect]
     Indication: MENOPAUSE
     Dosage: UNK
     Dates: start: 20010404, end: 20010601
  3. MEDROXYPROGESTERONE AND MEDROXYPROGESTERONE ACETATE [Suspect]
     Indication: MENOPAUSE
     Dosage: 2.5 MG, UNK
     Dates: end: 20070326
  4. CLIMARA [Suspect]
     Indication: MENOPAUSE
     Dosage: UNK
     Route: 062
     Dates: start: 20061108, end: 20070801
  5. ESTRATEST [Suspect]
     Indication: MENOPAUSE
     Dosage: 1.25 MG, UNK
     Dates: start: 20001227, end: 20070801
  6. COMBIPATCH [Suspect]
     Indication: MENOPAUSE
     Dosage: 14 MG, UNK
     Dates: start: 20010706, end: 20050501
  7. ESTRACE [Suspect]
     Indication: MENOPAUSE
     Dosage: 2 MG, UNK
     Dates: start: 19850101, end: 20040923
  8. TESTOSTERONE [Suspect]
     Indication: MENOPAUSE
     Dosage: UNK
     Dates: start: 20060810, end: 20070801
  9. CUMADIN [Concomitant]
     Indication: ANTICOAGULANT THERAPY
     Dosage: UNK
     Dates: start: 20030101, end: 20080101
  10. CARDIZEM [Concomitant]
     Indication: HYPERTENSION
     Dosage: UNK
     Dates: start: 20000101
  11. CARDIZEM [Concomitant]
     Indication: OESOPHAGEAL SPASM
  12. INDERAL [Concomitant]
     Indication: CARDIAC DISORDER
     Dosage: UNK
     Dates: start: 20030101
  13. INDERAL [Concomitant]
     Indication: MIGRAINE
  14. ACETYLSALICYLIC ACID [Concomitant]
     Indication: PROPHYLAXIS
     Dosage: UNK
     Dates: start: 20060101
  15. DYAZIDE [Concomitant]
     Indication: MENIERE'S DISEASE
     Dosage: UNK
     Dates: start: 20030101
  16. PROMETHAZINE [Concomitant]
     Indication: NAUSEA
     Dosage: UNK
     Dates: start: 20030101
  17. LOVASTATIN [Concomitant]
     Indication: BLOOD CHOLESTEROL
     Dosage: UNK
     Dates: start: 20030101
  18. CARISOPRODOL [Concomitant]
     Indication: MUSCLE RELAXANT THERAPY
     Dosage: UNK
     Dates: start: 19900101, end: 20080101
  19. ACETAMINOPHEN AND HYDROCODONE BITARTRATE [Concomitant]
     Indication: PAIN
     Dosage: UNK
     Dates: start: 20060101, end: 20090101
  20. ACYCLOVIR [Concomitant]
     Indication: HERPES VIRUS INFECTION
     Dosage: UNK
     Dates: start: 20080101
  21. CLONAZEPAM [Concomitant]
     Indication: ANXIETY
     Dosage: UNK
     Dates: start: 20070101
  22. CLONAZEPAM [Concomitant]
     Indication: TREMOR
  23. SOMA [Concomitant]
     Indication: MUSCLE RELAXANT THERAPY
     Dosage: UNK
     Dates: start: 19900101, end: 20000101
  24. OXYCODONE [Concomitant]
     Indication: PAIN
     Dosage: UNK
     Dates: start: 20090301
  25. FENTANYL [Concomitant]
     Indication: PAIN
     Dosage: UNK
     Dates: start: 20090601
  26. TRAZODONE [Concomitant]
     Indication: DEPRESSION
     Dosage: UNK
     Dates: start: 20080101

REACTIONS (3)
  - BREAST CANCER [None]
  - DEPRESSION [None]
  - PAIN [None]
